FAERS Safety Report 25392619 (Version 1)
Quarter: 2025Q2

REPORT INFORMATION
  Report Type: Spontaneous
  Country: CN (occurrence: CN)
  Receive Date: 20250603
  Receipt Date: 20250603
  Transmission Date: 20250717
  Serious: Yes (Hospitalization)
  Sender: ABBVIE
  Company Number: CN-ABBVIE-6306683

PATIENT
  Age: 64 Year
  Sex: Female
  Weight: 48 kg

DRUGS (3)
  1. VENCLEXTA [Suspect]
     Active Substance: VENETOCLAX
     Indication: Product used for unknown indication
     Route: 048
     Dates: start: 20250207, end: 20250211
  2. CYTARABINE [Suspect]
     Active Substance: CYTARABINE
     Indication: Product used for unknown indication
     Dosage: INTRAVENOUS DRIP
     Route: 065
     Dates: start: 20250207, end: 20250218
  3. ACLARUBICIN HYDROCHLORIDE [Suspect]
     Active Substance: ACLARUBICIN HYDROCHLORIDE
     Indication: Product used for unknown indication
     Dosage: INTRAVENOUS DRIP
     Route: 065
     Dates: start: 20250207, end: 20250208

REACTIONS (2)
  - Myelosuppression [Not Recovered/Not Resolved]
  - Ecchymosis [Unknown]

NARRATIVE: CASE EVENT DATE: 20250521
